FAERS Safety Report 9512532 (Version 1)
Quarter: 2013Q1

REPORT INFORMATION
  Report Type: Spontaneous
  Country: US (occurrence: None)
  Receive Date: 20130305
  Receipt Date: 20130305
  Transmission Date: 20140127
  Serious: Yes (Other)
  Sender: FDA-Public Use
  Company Number: 163-21880-12101309

PATIENT
  Age: 70 Year
  Sex: Female

DRUGS (4)
  1. REVLIMID (LENALIDOMIDE) (15 MILLIGRAM, CAPSULES) [Suspect]
     Indication: PLASMA CELL MYELOMA
     Dosage: 1 IN 1 D
     Route: 048
     Dates: start: 201112
  2. DULCOLAX (BISACODYL) (UNKNOWN) [Concomitant]
  3. AMLODIPINE BESYLATE (AMLODIPINE BESYLATE) (UNKNOWN) [Concomitant]
  4. SENNA (SENNA) (UNKNOWN) [Concomitant]

REACTIONS (1)
  - Renal disorder [None]
